FAERS Safety Report 4367405-9 (Version None)
Quarter: 2004Q2

REPORT INFORMATION
  Report Type: 
  Country: None (occurrence: None)
  Receive Date: 20040521
  Receipt Date: 20040408
  Transmission Date: 20050107
  Serious: Yes (Hospitalization)
  Sender: FDA-Public Use
  Company Number: 200412377US

PATIENT
  Age: 13 Year
  Sex: Male

DRUGS (1)
  1. LANTUS [Suspect]

REACTIONS (1)
  - HYPERGLYCAEMIA [None]
